FAERS Safety Report 23100556 (Version 1)
Quarter: 2023Q4

REPORT INFORMATION
  Report Type: Spontaneous
  Country: US (occurrence: None)
  Receive Date: 20231020
  Receipt Date: 20231020
  Transmission Date: 20240109
  Serious: No
  Sender: FDA-Public Use
  Company Number: None

PATIENT
  Sex: Female

DRUGS (1)
  1. VERZENIO [Suspect]
     Active Substance: ABEMACICLIB
     Indication: Breast cancer
     Dosage: OTHER FREQUENCY : DAILY, MON-FRI;?
     Route: 048
     Dates: start: 202210, end: 20231005

REACTIONS (3)
  - Platelet count decreased [None]
  - Menometrorrhagia [None]
  - Drug ineffective [None]
